FAERS Safety Report 5778762-0 (Version None)
Quarter: 2008Q2

REPORT INFORMATION
  Report Type: 
  Country: None (occurrence: None)
  Receive Date: 20080617
  Receipt Date: 20080605
  Transmission Date: 20081010
  Serious: Yes (Other)
  Sender: FDA-Public Use
  Company Number: 2008AL006510

PATIENT
  Age: 55 Year
  Sex: Female
  Weight: 51.2565 kg

DRUGS (1)
  1. DIGOXIN [Suspect]
     Indication: ARRHYTHMIA
     Dosage: .25MG DAILY PO
     Route: 048
     Dates: start: 20071228, end: 20080329

REACTIONS (1)
  - HEART RATE INCREASED [None]
